FAERS Safety Report 3988484 (Version 2)
Quarter: 2020Q3

REPORT INFORMATION
  Report Type: Spontaneous
  Country: FR (occurrence: None)
  Receive Date: 20010404
  Receipt Date: 20010418
  Transmission Date: 20201104
  Serious: Yes (Hospitalization)
  Sender: FDA-Public Use
  Company Number: 2001CG00303

PATIENT
  Age: 78 Year
  Sex: Female
  Weight: 47 kg

DRUGS (15)
  1. TRACRIUM [Suspect]
     Active Substance: ATRACURIUM BESYLATE
     Indication: ANAESTHESIA
     Dosage: 30 MG DAILY IV
     Route: 042
     Dates: start: 20010223, end: 20010223
  2. EPHEDRINE. [Suspect]
     Active Substance: EPHEDRINE
     Dosage: 9 MG DAILY
     Dates: start: 20010223, end: 20010223
  3. DIPRIVAN [Suspect]
     Active Substance: PROPOFOL
     Indication: ANAESTHESIA
     Dates: start: 20010223, end: 20010223
  4. PRIMPERAN [Suspect]
     Active Substance: METOCLOPRAMIDE HYDROCHLORIDE
     Dates: start: 20010225, end: 20010225
  5. ISOFLURANE. [Suspect]
     Active Substance: ISOFLURANE
     Indication: ANAESTHESIA
     Dates: start: 20010223, end: 20010223
  6. AUGMENTIN [Suspect]
     Active Substance: AMOXICILLIN\CLAVULANATE POTASSIUM
     Dosage: 1000 MG DAILY
     Dates: start: 20010226
  7. ACETAMINOPHEN\PROPOXYPHENE [Suspect]
     Active Substance: ACETAMINOPHEN\PROPOXYPHENE
     Dosage: 2 G DAILY IV
     Route: 042
     Dates: start: 20010222, end: 20010226
  8. ACUPAN [Suspect]
     Active Substance: NEFOPAM HYDROCHLORIDE
     Indication: ANAESTHESIA
     Dates: start: 20010223, end: 20010223
  9. ULTIVA [Suspect]
     Active Substance: REMIFENTANIL HYDROCHLORIDE
     Indication: ANAESTHESIA
     Dates: start: 20010223, end: 20010223
  10. NADROPARIN CALCIUM [Suspect]
     Active Substance: NADROPARIN CALCIUM
     Dates: start: 20010222, end: 20010222
  11. AUGMENTIN [Suspect]
     Active Substance: AMOXICILLIN\CLAVULANATE POTASSIUM
     Dosage: 1500 MG DAILY
     Dates: start: 20010226
  12. CIPROFLOXACIN. [Suspect]
     Active Substance: CIPROFLOXACIN
     Dates: start: 20010226, end: 20010226
  13. DAFALGAN [Concomitant]
     Active Substance: ACETAMINOPHEN
     Dosage: 6000 MG DAILY
     Dates: start: 20010224, end: 20010225
  14. NADROPARIN CALCIUM [Suspect]
     Active Substance: NADROPARIN CALCIUM
     Dates: start: 20010225, end: 20010225
  15. MEFOXIN [Suspect]
     Active Substance: CEFOXITIN SODIUM
     Dates: start: 20010223, end: 20010223

REACTIONS (9)
  - Hepatic enzyme increased [None]
  - Pyrexia [None]
  - Prothrombin level increased [None]
  - Liver disorder [None]
  - Aspartate aminotransferase increased [None]
  - C-reactive protein increased [None]
  - Blood bilirubin increased [None]
  - Hepatitis [None]
  - Alanine aminotransferase increased [None]

NARRATIVE: CASE EVENT DATE: 20010226
